FAERS Safety Report 5070036-9 (Version None)
Quarter: 2006Q3

REPORT INFORMATION
  Report Type: 
  Country: None (occurrence: None)
  Receive Date: 20060731
  Receipt Date: 20060724
  Transmission Date: 20061208
  Serious: Yes (Death)
  Sender: FDA-Public Use
  Company Number: GBWYE336424JUL06

PATIENT
  Age: 89 Year
  Sex: Male

DRUGS (6)
  1. TAZOCIN (PIPERACILLIN/TAZOBACTAM, INJECTION) [Suspect]
     Indication: NEUTROPENIC SEPSIS
     Dosage: 4.5 MG 3X PER 1 DAY
     Route: 042
     Dates: start: 20060526, end: 20060604
  2. ALLOPURINOL [Concomitant]
  3. CHLORAMBUCIL [Concomitant]
  4. FLUCONAZOLE [Concomitant]
  5. PREDNISOLONE [Concomitant]
  6. RANITIDINE [Concomitant]

REACTIONS (2)
  - CEREBROVASCULAR ACCIDENT [None]
  - SIMPLE PARTIAL SEIZURES [None]
